FAERS Safety Report 21443747 (Version 1)
Quarter: 2022Q4

REPORT INFORMATION
  Report Type: Spontaneous
  Country: US (occurrence: US)
  Receive Date: 20221012
  Receipt Date: 20221012
  Transmission Date: 20230112
  Serious: No
  Sender: FDA-Public Use
  Company Number: US-SA-SAC20221006001348

PATIENT
  Age: 57 Year
  Sex: Male

DRUGS (1)
  1. AUBAGIO [Suspect]
     Active Substance: TERIFLUNOMIDE
     Indication: Multiple sclerosis
     Dosage: 7 MG, QD
     Route: 058
     Dates: start: 20220910

REACTIONS (6)
  - Fatigue [Unknown]
  - Amnesia [Unknown]
  - Insomnia [Unknown]
  - Aphasia [Unknown]
  - Hypertension [Unknown]
  - Diarrhoea [Unknown]
